FAERS Safety Report 23878348 (Version 2)
Quarter: 2024Q2

REPORT INFORMATION
  Report Type: Report from Study
  Country: AR (occurrence: AR)
  Receive Date: 20240521
  Receipt Date: 20240610
  Transmission Date: 20240716
  Serious: Yes (Death, Hospitalization, Other)
  Sender: FDA-Public Use
  Company Number: AR-TAKEDA-2024TUS050157

PATIENT
  Age: 64 Year
  Sex: Female

DRUGS (1)
  1. BRIGATINIB [Suspect]
     Active Substance: BRIGATINIB
     Indication: Lung neoplasm malignant
     Dosage: 180 MILLIGRAM, QD
     Route: 048
     Dates: start: 20220411, end: 20240508

REACTIONS (5)
  - Cardio-respiratory arrest [Fatal]
  - Tracheal pain [Unknown]
  - Oesophageal pain [Unknown]
  - Asthenia [Unknown]
  - Eating disorder [Unknown]

NARRATIVE: CASE EVENT DATE: 20240430
